FAERS Safety Report 10387842 (Version 2)
Quarter: 2014Q3

REPORT INFORMATION
  Report Type: Spontaneous
  Country: US (occurrence: US)
  Receive Date: 20140815
  Receipt Date: 20140815
  Transmission Date: 20150326
  Serious: Yes (Hospitalization, Disabling, Other)
  Sender: FDA-Public Use
  Company Number: US-009507513-2009SP035179

PATIENT
  Sex: Female
  Weight: 61.24 kg

DRUGS (9)
  1. XOPENEX [Concomitant]
     Active Substance: LEVALBUTEROL HYDROCHLORIDE
  2. ZOLOFT [Concomitant]
     Active Substance: SERTRALINE HYDROCHLORIDE
  3. NUVARING [Suspect]
     Active Substance: ETHINYL ESTRADIOL\ETONOGESTREL
     Indication: CONTRACEPTION
     Route: 067
     Dates: start: 20050816, end: 200711
  4. LEVAQUIN [Suspect]
     Active Substance: LEVOFLOXACIN
     Indication: KIDNEY INFECTION
     Dates: start: 20070816
  5. IBUPROFEN. [Concomitant]
     Active Substance: IBUPROFEN
  6. ADVAIR HFA [Concomitant]
     Active Substance: FLUTICASONE PROPIONATE\SALMETEROL XINAFOATE
  7. PROVENTIL [Concomitant]
     Active Substance: ALBUTEROL
  8. NUTRITIONAL SUPPLEMENTS [Concomitant]
     Active Substance: DIETARY SUPPLEMENT
  9. ANTIMICROBIAL (UNSPECIFIED) [Concomitant]
     Active Substance: UNSPECIFIED INGREDIENT

REACTIONS (11)
  - Depression [Unknown]
  - Transient ischaemic attack [Unknown]
  - Kidney infection [Unknown]
  - Dysaesthesia [Unknown]
  - Urinary tract infection [Unknown]
  - Adverse drug reaction [Unknown]
  - Cerebrovascular accident [Unknown]
  - Hyperglycaemia [Unknown]
  - Migraine [Unknown]
  - Unintended pregnancy [Recovered/Resolved]
  - Drug hypersensitivity [Unknown]

NARRATIVE: CASE EVENT DATE: 20060512
